FAERS Safety Report 24605234 (Version 1)
Quarter: 2024Q4

REPORT INFORMATION
  Report Type: Spontaneous
  Country: US (occurrence: US)
  Receive Date: 20241111
  Receipt Date: 20241111
  Transmission Date: 20250114
  Serious: No
  Sender: INCYTE
  Company Number: US-EVENT-000295

PATIENT

DRUGS (2)
  1. OPZELURA [Suspect]
     Active Substance: RUXOLITINIB PHOSPHATE
     Indication: Dermatitis atopic
     Dosage: UNK UNK, BID
     Route: 061
  2. OPZELURA [Suspect]
     Active Substance: RUXOLITINIB PHOSPHATE
     Indication: Vitiligo

REACTIONS (1)
  - Vitiligo [Unknown]
